FAERS Safety Report 4431139-2 (Version None)
Quarter: 2004Q3

REPORT INFORMATION
  Report Type: 
  Country: None (occurrence: None)
  Receive Date: 20040823
  Receipt Date: 20040823
  Transmission Date: 20050211
  Serious: Yes (Other)
  Sender: FDA-Public Use
  Company Number: None

PATIENT
  Age: 33 Year
  Sex: Female

DRUGS (1)
  1. PAXIL [Suspect]
     Indication: GENERALISED ANXIETY DISORDER
     Dosage: 40 DAILY ORAL
     Route: 048
     Dates: start: 20000404, end: 20040813

REACTIONS (5)
  - DRUG WITHDRAWAL SYNDROME [None]
  - HOT FLUSH [None]
  - INFLUENZA LIKE ILLNESS [None]
  - MYALGIA [None]
  - PARAESTHESIA [None]
